FAERS Safety Report 9788778 (Version 2)
Quarter: 2014Q1

REPORT INFORMATION
  Report Type: Report from Study
  Country: JP (occurrence: JP)
  Receive Date: 20131230
  Receipt Date: 20140203
  Transmission Date: 20141002
  Serious: Yes (Other)
  Sender: FDA-Public Use
  Company Number: JP-009507513-1312JPN012176

PATIENT
  Age: 76 Year
  Sex: Male

DRUGS (17)
  1. JANUVIA TABLETS 50MG [Suspect]
     Indication: TYPE 2 DIABETES MELLITUS
     Dosage: 50 MG, QD
     Route: 048
     Dates: start: 20120912
  2. ACTOS [Suspect]
     Indication: TYPE 2 DIABETES MELLITUS
     Dosage: 15 MG, QD
     Route: 048
  3. BASEN [Suspect]
     Indication: TYPE 2 DIABETES MELLITUS
     Dosage: 0.3 MG, BID
     Route: 048
     Dates: start: 20080226, end: 20120911
  4. BASEN [Suspect]
     Dosage: 0.3 MG, TID
     Dates: start: 20121114
  5. ALDACTONE TABLETS [Concomitant]
     Indication: CARDIAC HYPERTROPHY
     Dosage: 25 MG, QD
     Route: 048
  6. ALDACTONE TABLETS [Concomitant]
     Indication: CARDIAC HYPERTROPHY
  7. LASIX (FUROSEMIDE) [Concomitant]
     Indication: CARDIAC HYPERTROPHY
     Dosage: 20 MG, QD
     Route: 048
  8. BUFFERIN [Concomitant]
     Indication: ATRIAL FIBRILLATION
     Dosage: 81 MG, QD
     Route: 048
  9. AMLODIN (AMLODIPINE BESYLATE) [Concomitant]
     Indication: HYPERTENSION
     Dosage: 5 MG, QD
     Route: 048
  10. NOVORAPID FLEXPEN [Suspect]
     Indication: TYPE 2 DIABETES MELLITUS
     Dosage: 21 DF, TID
     Route: 051
     Dates: end: 20130821
  11. NOVORAPID FLEXPEN [Suspect]
     Dosage: 23 DF, TID
     Route: 051
     Dates: start: 20130830, end: 20130830
  12. NOVORAPID FLEXPEN [Suspect]
     Dosage: 25 DF, TID
     Route: 051
     Dates: start: 20130831, end: 20130906
  13. NOVORAPID FLEXPEN [Suspect]
     Dosage: 29 DF, TID
     Route: 051
     Dates: start: 20130907, end: 20130919
  14. LANTUS [Suspect]
     Indication: TYPE 2 DIABETES MELLITUS
     Dosage: ONE INSULIN SCALE ONCE
     Route: 051
     Dates: start: 20130823, end: 20130829
  15. LANTUS [Suspect]
     Dosage: 8 DF, QD
     Route: 051
     Dates: start: 20130829, end: 20130919
  16. NOVORAPID [Suspect]
     Indication: TYPE 2 DIABETES MELLITUS
     Dosage: ONE INSULIN SCALE ONCE
     Route: 051
     Dates: start: 20130824, end: 20130829
  17. NOVORAPID FLEXPEN [Suspect]
     Indication: TYPE 2 DIABETES MELLITUS
     Dosage: 18 DF, BID
     Route: 051
     Dates: start: 20130920

REACTIONS (3)
  - Hypoglycaemia [Recovering/Resolving]
  - Diabetes mellitus inadequate control [Recovering/Resolving]
  - Hypoglycaemia [Recovered/Resolved]
